FAERS Safety Report 17359715 (Version 2)
Quarter: 2020Q1

REPORT INFORMATION
  Report Type: Spontaneous
  Country: US (occurrence: US)
  Receive Date: 20200203
  Receipt Date: 20200227
  Transmission Date: 20200409
  Serious: Yes (Death, Hospitalization, Other)
  Sender: FDA-Public Use
  Company Number: US-009507513-2001USA011038

PATIENT
  Sex: Male
  Weight: 79.37 kg

DRUGS (3)
  1. JANUMET [Suspect]
     Active Substance: METFORMIN HYDROCHLORIDE\SITAGLIPTIN PHOSPHATE
     Indication: TYPE 2 DIABETES MELLITUS
     Dosage: 50-500 MG TABLET, TWICE DAILY
     Route: 048
     Dates: start: 20140204, end: 201506
  2. CYANOCOBALAMIN. [Concomitant]
     Active Substance: CYANOCOBALAMIN
     Indication: ANAEMIA
     Dosage: 1000 MICROGRAM, Q MONTH
     Route: 030
     Dates: start: 2014, end: 2015
  3. ASPIR-81 [Concomitant]
     Active Substance: ASPIRIN
     Indication: CORONARY ARTERY DISEASE
     Dosage: 1 TABLET, DAILY
     Route: 048
     Dates: start: 2000, end: 2015

REACTIONS (9)
  - Delirium [Unknown]
  - Osteolysis [Unknown]
  - Pancreatitis chronic [Unknown]
  - Catheter placement [Unknown]
  - Lymphadenopathy [Unknown]
  - Adrenal disorder [Unknown]
  - Aortic arteriosclerosis [Unknown]
  - Nephrolithiasis [Unknown]
  - Pancreatic carcinoma metastatic [Fatal]

NARRATIVE: CASE EVENT DATE: 2014
